FAERS Safety Report 7146356-0 (Version None)
Quarter: 2010Q4

REPORT INFORMATION
  Report Type: 
  Country: None (occurrence: None)
  Receive Date: 20101208
  Receipt Date: 20101205
  Transmission Date: 20110411
  Serious: Yes (Hospitalization)
  Sender: FDA-Public Use
  Company Number: NZ-CEPHALON-2010006318

PATIENT
  Sex: Male
  Weight: 98 kg

DRUGS (11)
  1. TREANDA [Suspect]
     Indication: NON-HODGKIN'S LYMPHOMA
     Route: 041
     Dates: start: 20100916, end: 20101126
  2. RITUXIMAB [Suspect]
     Indication: NON-HODGKIN'S LYMPHOMA
     Route: 042
     Dates: start: 20100916, end: 20101126
  3. ASPIRIN [Concomitant]
     Indication: HYPERTENSION
  4. CILAZAPRIL [Concomitant]
     Indication: HYPERTENSION
     Dates: start: 20090101
  5. OMEPRAZOLE [Concomitant]
     Indication: GASTROOESOPHAGEAL REFLUX DISEASE
     Dates: start: 20040101
  6. METFORMIN [Concomitant]
     Indication: TYPE 2 DIABETES MELLITUS
     Dates: start: 19990101
  7. BUDESONIDE [Concomitant]
     Indication: ASTHMA
  8. TESTOSTERONE [Concomitant]
     Indication: HYPOGONADISM MALE
  9. FERROGRADUMET [Concomitant]
     Indication: ANAEMIA
  10. VENTOLIN [Concomitant]
     Indication: ASTHMA
  11. ALLOPURINOL [Concomitant]
     Indication: GOUT

REACTIONS (13)
  - ALANINE AMINOTRANSFERASE INCREASED [None]
  - BACTERIAL TEST POSITIVE [None]
  - BLOOD GLUCOSE INCREASED [None]
  - CHRONIC OBSTRUCTIVE PULMONARY DISEASE [None]
  - GLOBULINS DECREASED [None]
  - HAEMOGLOBIN DECREASED [None]
  - LUNG INFECTION [None]
  - MONOCYTE COUNT DECREASED [None]
  - NEUTROPENIA [None]
  - PROTEIN TOTAL DECREASED [None]
  - RED BLOOD CELL COUNT DECREASED [None]
  - RESPIRATORY TRACT INFECTION [None]
  - WHITE BLOOD CELL COUNT DECREASED [None]
